FAERS Safety Report 4460815-0 (Version None)
Quarter: 2004Q3

REPORT INFORMATION
  Report Type: 
  Country: None (occurrence: None)
  Receive Date: 20040928
  Receipt Date: 20040809
  Transmission Date: 20050211
  Serious: No
  Sender: FDA-Public Use
  Company Number: US-GLAXOSMITHKLINE-A0521550A

PATIENT
  Age: 64 Year
  Sex: Female

DRUGS (9)
  1. ADVAIR DISKUS 100/50 [Suspect]
     Dosage: 1PUFF TWICE PER DAY
     Route: 055
  2. SEREVENT [Concomitant]
  3. FLONASE [Concomitant]
  4. FLOVENT [Concomitant]
  5. SINGULAIR [Concomitant]
  6. ZYRTEC [Concomitant]
  7. BENTYL [Concomitant]
  8. ZOCOR [Concomitant]
  9. ZESTORETIC [Concomitant]

REACTIONS (1)
  - ORAL CANDIDIASIS [None]
